FAERS Safety Report 15429797 (Version 1)
Quarter: 2018Q4

REPORT INFORMATION
  Report Type: Spontaneous
  Country: US (occurrence: US)
  Receive Date: 20180926
  Receipt Date: 20180926
  Transmission Date: 20190204
  Serious: No
  Sender: FDA-Public Use
  Company Number: US-ASSERTIO THERAPEUTICS, INC.-US-2017DEP001761

PATIENT

DRUGS (3)
  1. GRALISE [Suspect]
     Active Substance: GABAPENTIN
     Indication: MIXED CONNECTIVE TISSUE DISEASE
     Dosage: 1800 MG, QD
     Route: 048
     Dates: start: 2016
  2. AMITIZA [Concomitant]
     Active Substance: LUBIPROSTONE
     Indication: GASTROINTESTINAL MOTILITY DISORDER
     Dosage: 24 ?G, QD
     Route: 048
  3. PREMARIN [Concomitant]
     Active Substance: ESTROGENS, CONJUGATED
     Indication: MENOPAUSE
     Dosage: 0.9 MG, QD
     Route: 048

REACTIONS (2)
  - Vomiting [Not Recovered/Not Resolved]
  - Product use in unapproved indication [Not Recovered/Not Resolved]

NARRATIVE: CASE EVENT DATE: 2016
